FAERS Safety Report 4804414-7 (Version None)
Quarter: 2005Q4

REPORT INFORMATION
  Report Type: 
  Country: None (occurrence: None)
  Receive Date: 20051020
  Receipt Date: 20051018
  Transmission Date: 20060501
  Serious: Yes (Other)
  Sender: FDA-Public Use
  Company Number: US-GLAXOSMITHKLINE-A0578667A

PATIENT
  Age: 49 Year
  Sex: Male

DRUGS (4)
  1. LEXIVA [Suspect]
     Indication: HIV INFECTION
     Route: 048
     Dates: start: 20050801
  2. TENOFOVIR [Concomitant]
  3. EMTRICITABINE [Concomitant]
  4. NORVIR [Concomitant]

REACTIONS (1)
  - HYPERBILIRUBINAEMIA [None]
